FAERS Safety Report 7259328-2 (Version None)
Quarter: 2011Q1

REPORT INFORMATION
  Report Type: 
  Country: None (occurrence: None)
  Receive Date: 20110129
  Receipt Date: 20100818
  Transmission Date: 20110831
  Serious: No
  Sender: FDA-Public Use
  Company Number: US-ABBOTT-10P-163-0665737-00

PATIENT
  Age: 56 Year
  Sex: Male

DRUGS (9)
  1. PRAVASTATIN [Concomitant]
     Indication: BLOOD CHOLESTEROL INCREASED
     Route: 048
  2. UNKNOWN GENERIC ACID REDUCER [Concomitant]
     Indication: PRODUCT USED FOR UNKNOWN INDICATION
  3. BENAZEPRIL HYDROCHLORIDE [Concomitant]
     Indication: HYPERTENSION
     Route: 048
  4. ZYRTEC [Concomitant]
     Indication: PRODUCT USED FOR UNKNOWN INDICATION
  5. HUMIRA [Suspect]
     Indication: PSORIASIS
     Route: 058
     Dates: start: 20090301
  6. ALBUTEROL [Concomitant]
     Indication: ASTHMA
  7. ASPIRIN [Concomitant]
     Indication: PRODUCT USED FOR UNKNOWN INDICATION
     Route: 048
  8. DESONIDE [Concomitant]
     Indication: PSORIASIS
     Route: 061
  9. TACLONEX [Concomitant]
     Indication: PSORIASIS
     Route: 061

REACTIONS (3)
  - PAIN [None]
  - PILONIDAL CYST [None]
  - CYST DRAINAGE [None]
